FAERS Safety Report 14579923 (Version 1)
Quarter: 2018Q1

REPORT INFORMATION
  Report Type: Report from Study
  Country: None (occurrence: US)
  Receive Date: 20180228
  Receipt Date: 20180228
  Transmission Date: 20180509
  Serious: Yes (Hospitalization, Other)
  Sender: FDA-Public Use
  Company Number: US-ABBVIE-18K-163-2267197-00

PATIENT
  Age: 22 Year
  Sex: Male
  Weight: 73.55 kg

DRUGS (3)
  1. HUMIRA [Suspect]
     Active Substance: ADALIMUMAB
     Indication: COLITIS ULCERATIVE
     Route: 058
     Dates: end: 2016
  2. HUMIRA [Suspect]
     Active Substance: ADALIMUMAB
     Route: 058
  3. ENTYVIO [Suspect]
     Active Substance: VEDOLIZUMAB
     Indication: COLITIS ULCERATIVE
     Route: 065
     Dates: end: 201711

REACTIONS (7)
  - Colitis [Recovered/Resolved]
  - Colectomy [Not Recovered/Not Resolved]
  - Appendicectomy [Not Recovered/Not Resolved]
  - Colitis ulcerative [Recovered/Resolved]
  - Ileostomy [Not Recovered/Not Resolved]
  - Hepatic steatosis [Recovering/Resolving]
  - Hepatic enzyme increased [Unknown]

NARRATIVE: CASE EVENT DATE: 201505
